FAERS Safety Report 10156620 (Version 1)
Quarter: 2014Q2

REPORT INFORMATION
  Report Type: Spontaneous
  Country: US (occurrence: US)
  Receive Date: 20140507
  Receipt Date: 20140507
  Transmission Date: 20141212
  Serious: No
  Sender: FDA-Public Use
  Company Number: US-009507513-1405USA003415

PATIENT
  Sex: Female
  Weight: 95.24 kg

DRUGS (2)
  1. IMPLANON [Suspect]
     Indication: CONTRACEPTION
     Dosage: DOSE/FREQUENCY-1 ROD FOR 3 YEARS
     Route: 059
     Dates: start: 20140321
  2. IMPLANON [Suspect]
     Indication: OVARIAN ENLARGEMENT

REACTIONS (2)
  - Menorrhagia [Unknown]
  - Off label use [Unknown]
